FAERS Safety Report 6095075-0 (Version None)
Quarter: 2009Q1

REPORT INFORMATION
  Report Type: 
  Country: None (occurrence: None)
  Receive Date: 20090227
  Receipt Date: 20080128
  Transmission Date: 20090719
  Serious: Yes (Other)
  Sender: FDA-Public Use
  Company Number: A0703023A

PATIENT
  Age: 55 Year
  Sex: Male
  Weight: 84.1 kg

DRUGS (2)
  1. LAMICTAL [Suspect]
     Indication: BIPOLAR DISORDER
     Dosage: 200MG PER DAY
     Route: 048
     Dates: start: 20070701, end: 20080108
  2. INVEGA [Concomitant]

REACTIONS (1)
  - RASH [None]
